FAERS Safety Report 11636868 (Version 1)
Quarter: 2015Q4

REPORT INFORMATION
  Report Type: Spontaneous
  Country: US (occurrence: None)
  Receive Date: 20151015
  Receipt Date: 20151015
  Transmission Date: 20160304
  Serious: Yes (Other)
  Sender: FDA-Public Use
  Company Number: None

PATIENT
  Age: 67 Year
  Sex: Female
  Weight: 108.86 kg

DRUGS (18)
  1. POTASSIUM K [Concomitant]
  2. NEURONTIN [Concomitant]
     Active Substance: GABAPENTIN
  3. PROBIOTICS [Concomitant]
     Active Substance: PROBIOTICS NOS
  4. COZAR [Concomitant]
  5. VITAMIN D [Concomitant]
     Active Substance: CHOLECALCIFEROL
  6. ROBAXIN [Concomitant]
     Active Substance: METHOCARBAMOL
  7. ALDACTON [Concomitant]
  8. SULFAMETHOXAZOLE/TRIMETHROPRIM 40 MG/5 ML [Suspect]
     Active Substance: SULFAMETHOXAZOLE\TRIMETHOPRIM
     Indication: URINARY TRACT INFECTION
     Route: 048
  9. ZOLOFT [Concomitant]
     Active Substance: SERTRALINE HYDROCHLORIDE
  10. GLIPIZIDE. [Concomitant]
     Active Substance: GLIPIZIDE
  11. VITAMIN B12 [Concomitant]
     Active Substance: CYANOCOBALAMIN
  12. FISH OIL [Concomitant]
     Active Substance: FISH OIL
  13. CAL/MAG [Concomitant]
  14. COREG [Concomitant]
     Active Substance: CARVEDILOL
  15. LEVOTHROID [Concomitant]
     Active Substance: LEVOTHYROXINE SODIUM
  16. LOVASTATIN. [Concomitant]
     Active Substance: LOVASTATIN
  17. ESTRACE [Concomitant]
     Active Substance: ESTRADIOL
  18. INSULIN [Concomitant]
     Active Substance: INSULIN NOS

REACTIONS (3)
  - Muscle spasms [None]
  - Pain in extremity [None]
  - Arthralgia [None]

NARRATIVE: CASE EVENT DATE: 20151014
